FAERS Safety Report 20875274 (Version 2)
Quarter: 2022Q2

REPORT INFORMATION
  Report Type: Report from Study
  Country: HK (occurrence: HK)
  Receive Date: 20220526
  Receipt Date: 20220624
  Transmission Date: 20220720
  Serious: Yes (Death, Other)
  Sender: FDA-Public Use
  Company Number: HK-ASTELLAS-2022US018323

PATIENT
  Age: 59 Year
  Sex: Male

DRUGS (3)
  1. BENDAMUSTINE HYDROCHLORIDE [Suspect]
     Active Substance: BENDAMUSTINE HYDROCHLORIDE
     Indication: Follicular lymphoma
     Dosage: (6 CYCLES)
     Route: 042
  2. OBINUTUZUMAB [Concomitant]
     Active Substance: OBINUTUZUMAB
     Indication: Follicular lymphoma
     Dosage: (6 CYCLES)
     Route: 065
  3. ANIDULAFUNGIN [Concomitant]
     Active Substance: ANIDULAFUNGIN
     Indication: Antifungal prophylaxis
     Route: 065

REACTIONS (5)
  - Scedosporium infection [Fatal]
  - Pneumonia fungal [Fatal]
  - Systemic mycosis [Fatal]
  - Bacterial infection [Fatal]
  - Sepsis [Fatal]
